FAERS Safety Report 7565621-6 (Version None)
Quarter: 2011Q2

REPORT INFORMATION
  Report Type: 
  Country: None (occurrence: None)
  Receive Date: 20110623
  Receipt Date: 20110414
  Transmission Date: 20111010
  Serious: Yes (Other)
  Sender: FDA-Public Use
  Company Number: FR-JNJFOC-20110100517

PATIENT
  Age: 44 Year
  Sex: Female
  Weight: 89 kg

DRUGS (11)
  1. EFFEXOR [Concomitant]
     Dates: start: 20100101
  2. REMICADE [Suspect]
     Indication: CROHN'S DISEASE
     Route: 042
     Dates: start: 20100102, end: 20101110
  3. PREDNISONE [Concomitant]
     Indication: CROHN'S DISEASE
     Dates: start: 20060101
  4. REMICADE [Suspect]
     Indication: SPONDYLITIS
     Route: 042
     Dates: start: 20100102, end: 20101110
  5. AZATHIOPRINE SODIUM [Suspect]
     Indication: CROHN'S DISEASE
     Route: 048
     Dates: start: 20060101, end: 20101101
  6. XANAX [Concomitant]
     Indication: DEPRESSION
     Dates: start: 20080101
  7. XANAX [Concomitant]
     Indication: ANXIETY
     Dates: start: 20080101
  8. CREON [Concomitant]
     Indication: PANCREATIC INSUFFICIENCY
     Dates: start: 20080101
  9. DIAMICRON [Concomitant]
     Indication: TYPE 2 DIABETES MELLITUS
  10. AZATHIOPRINE SODIUM [Suspect]
     Indication: SPONDYLITIS
     Route: 048
     Dates: start: 20060101, end: 20101101
  11. PREDNISONE [Concomitant]
     Dates: start: 20060101

REACTIONS (1)
  - HODGKIN'S DISEASE [None]
